FAERS Safety Report 9771290 (Version 3)
Quarter: 2014Q1

REPORT INFORMATION
  Report Type: Report from Study
  Country: DE (occurrence: DE)
  Receive Date: 20131218
  Receipt Date: 20140116
  Transmission Date: 20141002
  Serious: Yes (Life-Threatening, Other)
  Sender: FDA-Public Use
  Company Number: DE-US-EMD SERONO, INC.-7257926

PATIENT
  Age: 46 Year
  Sex: Female

DRUGS (4)
  1. REBIF [Suspect]
     Indication: MULTIPLE SCLEROSIS
     Route: 058
     Dates: start: 20130104
  2. KLIMONORM [Concomitant]
     Indication: PRODUCT USED FOR UNKNOWN INDICATION
  3. VITAMINE [Concomitant]
     Indication: PRODUCT USED FOR UNKNOWN INDICATION
  4. IBUFLAM                            /00109201/ [Concomitant]
     Indication: PRODUCT USED FOR UNKNOWN INDICATION
     Dates: end: 20121030

REACTIONS (19)
  - Migraine [Recovered/Resolved]
  - Myocardial infarction [Recovered/Resolved]
  - Cerebrovascular accident [Recovered/Resolved]
  - Renal failure [Recovered/Resolved]
  - Pain [Recovered/Resolved]
  - Hypertension [Unknown]
  - Micturition disorder [Recovered/Resolved]
  - Pulpitis dental [Recovered/Resolved]
  - Hypoaesthesia [Recovered/Resolved]
  - Gait disturbance [Recovered/Resolved]
  - Hypotension [Recovered/Resolved]
  - Bladder dysfunction [Recovered/Resolved]
  - Palpitations [Recovered/Resolved]
  - Heart sounds abnormal [Recovered/Resolved]
  - Chest discomfort [Recovered/Resolved]
  - Sensation of heaviness [Recovered/Resolved]
  - Vertigo [Recovered/Resolved]
  - Ovarian disorder [Recovered/Resolved]
  - Pyrexia [Recovered/Resolved]
